FAERS Safety Report 9689350 (Version 1)
Quarter: 2013Q4

REPORT INFORMATION
  Report Type: Spontaneous
  Country: IT (occurrence: IT)
  Receive Date: 20131114
  Receipt Date: 20131114
  Transmission Date: 20140711
  Serious: Yes (Hospitalization, Other)
  Sender: FDA-Public Use
  Company Number: IT-PFIZER INC-2013323429

PATIENT
  Age: 46 Year
  Sex: Female

DRUGS (19)
  1. FRONTAL [Suspect]
     Indication: PERSONALITY DISORDER
     Dosage: 0.75MG/ML,  (1 DOSAGE FORMS,TOTAL)
     Route: 048
     Dates: start: 20131029, end: 20131029
  2. FRONTAL [Suspect]
     Indication: DEPRESSION
  3. FRONTAL [Suspect]
     Indication: RABIES
  4. ZOLOFT [Suspect]
     Indication: PERSONALITY DISORDER
     Dosage: 100 MG, (1 DOSAGE UNIT TOTAL)
     Route: 048
     Dates: start: 20131029, end: 20131029
  5. ZOLOFT [Suspect]
     Indication: DEPRESSION
  6. ZOLOFT [Suspect]
     Indication: RABIES
  7. MIRTAZAPINE [Suspect]
     Indication: PERSONALITY DISORDER
     Dosage: (1 DOSAGE FORMS,TOTAL)
     Route: 048
     Dates: start: 20131029, end: 20131029
  8. MIRTAZAPINE [Suspect]
     Indication: DEPRESSION
  9. MIRTAZAPINE [Suspect]
     Indication: RABIES
  10. STILNOX [Suspect]
     Indication: PERSONALITY DISORDER
     Dosage: 10 MG, (1 UNIT TOTAL)
     Route: 048
     Dates: start: 20131029, end: 20131029
  11. STILNOX [Suspect]
     Indication: DEPRESSION
  12. STILNOX [Suspect]
     Indication: RABIES
  13. SONIREM [Suspect]
     Indication: PERSONALITY DISORDER
     Dosage: 10 MG/ML,  (1 UNIT TOTAL)
     Route: 048
     Dates: start: 20131029, end: 20131029
  14. SONIREM [Suspect]
     Indication: DEPRESSION
  15. SONIREM [Suspect]
     Indication: RABIES
  16. TRITTICO [Suspect]
     Indication: PERSONALITY DISORDER
     Dosage: 25 MG/ML ( 1 UNIT AS NEEDED)
     Route: 048
     Dates: start: 20131029, end: 20131029
  17. TRITTICO [Suspect]
     Indication: DEPRESSION
  18. TRITTICO [Suspect]
     Indication: RABIES
  19. RANIBEN [Concomitant]
     Dosage: 150 MG, UNK
     Route: 065

REACTIONS (5)
  - Sopor [Recovered/Resolved]
  - Drug abuse [Recovered/Resolved]
  - Drug level increased [Unknown]
  - Anger [Unknown]
  - Off label use [Recovered/Resolved]
